FAERS Safety Report 12880553 (Version 1)
Quarter: 2016Q4

REPORT INFORMATION
  Report Type: Spontaneous
  Country: BR (occurrence: BR)
  Receive Date: 20161025
  Receipt Date: 20161025
  Transmission Date: 20170207
  Serious: Yes (Other)
  Sender: FDA-Public Use
  Company Number: BR-PFIZER INC-2016493576

PATIENT
  Age: 45 Year
  Sex: Female
  Weight: 78 kg

DRUGS (2)
  1. GEODON [Suspect]
     Active Substance: ZIPRASIDONE HYDROCHLORIDE\ZIPRASIDONE MESYLATE
     Indication: PSYCHOTIC DISORDER
     Dosage: 40 MG, DAILY
     Route: 048
     Dates: start: 2014
  2. DONAREN [Concomitant]
     Active Substance: TRAZODONE HYDROCHLORIDE
     Dosage: 250 MG, DAILY (5 TABLETS/DAY)
     Route: 048

REACTIONS (1)
  - Dependence [Not Recovered/Not Resolved]
